FAERS Safety Report 25618042 (Version 2)
Quarter: 2025Q3

REPORT INFORMATION
  Report Type: Spontaneous
  Country: GB (occurrence: GB)
  Receive Date: 20250729
  Receipt Date: 20250806
  Transmission Date: 20251021
  Serious: Yes (Hospitalization, Other)
  Sender: ELI LILLY AND COMPANY
  Company Number: GB-MHRA-EMIS-2572-da25585f-44cc-4d08-8402-474219e4ca66

PATIENT
  Age: 60 Year
  Sex: Female
  Weight: 69 kg

DRUGS (3)
  1. MOUNJARO [Suspect]
     Active Substance: TIRZEPATIDE
     Indication: Product used for unknown indication
     Dosage: 2.5 MG, WEEKLY (1/W)
     Route: 058
     Dates: start: 20250415
  2. HYDROCORTISONE [Concomitant]
     Active Substance: HYDROCORTISONE
     Indication: Product used for unknown indication
     Dosage: 15 G, BID FOR 7 DAYS
     Dates: start: 20250415
  3. OMEPRAZOLE [Concomitant]
     Active Substance: OMEPRAZOLE
     Indication: Product used for unknown indication
     Dosage: 1 DOSAGE FORM, DAILY
     Dates: start: 20250428

REACTIONS (2)
  - Appendicitis perforated [Unknown]
  - Appendicitis [Recovering/Resolving]

NARRATIVE: CASE EVENT DATE: 20250422
